FAERS Safety Report 8984265 (Version 2)
Quarter: 2013Q1

REPORT INFORMATION
  Report Type: Spontaneous
  Country: DK (occurrence: None)
  Receive Date: 20121212
  Receipt Date: 20130108
  Transmission Date: 20140127
  Serious: Yes (Other)
  Sender: FDA-Public Use
  Company Number: 2012MA013912

PATIENT
  Sex: Male

DRUGS (2)
  1. ACETAMINOPHEN AND CODEINE [Suspect]
     Indication: DIARRHOEA
  2. LOPERAMIDE [Concomitant]

REACTIONS (1)
  - Lactose intolerance [None]
